FAERS Safety Report 9854882 (Version 2)
Quarter: 2014Q1

REPORT INFORMATION
  Report Type: Spontaneous
  Country: US (occurrence: None)
  Receive Date: 20140127
  Receipt Date: 20140312
  Transmission Date: 20141002
  Serious: Yes (Death)
  Sender: FDA-Public Use
  Company Number: UTC-043693

PATIENT
  Age: 50 Year
  Sex: Female
  Weight: 89.5 kg

DRUGS (2)
  1. REMODULIN [Suspect]
     Indication: PULMONARY ARTERIAL HYPERTENSION
     Dosage: 47.52 UG/KG (0.033 UG/KG, 1 IN 1 MIN), INTRAVENOUS DRIP
     Route: 041
     Dates: start: 20130123
  2. ADCIRCA (TADALAFIL) (UNKNOWN) [Concomitant]

REACTIONS (2)
  - Death [None]
  - Cardiac arrest [None]
